FAERS Safety Report 24123750 (Version 1)
Quarter: 2024Q3

REPORT INFORMATION
  Report Type: Spontaneous
  Country: US (occurrence: US)
  Receive Date: 20240723
  Receipt Date: 20240723
  Transmission Date: 20241016
  Serious: No
  Sender: OTSUKA
  Company Number: US-OTSUKA-2024_014311

PATIENT
  Sex: Female
  Weight: 54.43 kg

DRUGS (2)
  1. REXULTI [Suspect]
     Active Substance: BREXPIPRAZOLE
     Indication: Anxiety
     Dosage: 0.5 MG
     Route: 065
     Dates: start: 202405
  2. REXULTI [Suspect]
     Active Substance: BREXPIPRAZOLE
     Indication: Depression

REACTIONS (1)
  - Off label use [Unknown]
